FAERS Safety Report 16333743 (Version 2)
Quarter: 2019Q2

REPORT INFORMATION
  Report Type: Report from Study
  Country: IE (occurrence: IE)
  Receive Date: 20190520
  Receipt Date: 20190528
  Transmission Date: 20190711
  Serious: Yes (Hospitalization)
  Sender: FDA-Public Use
  Company Number: IE-JNJFOC-20190523279

PATIENT
  Age: 57 Year
  Sex: Female

DRUGS (7)
  1. LISINOPRIL. [Concomitant]
     Active Substance: LISINOPRIL
     Route: 065
  2. LEVOCETIRIZINE DIHYDROCHLORIDE. [Concomitant]
     Active Substance: LEVOCETIRIZINE DIHYDROCHLORIDE
  3. STELARA [Suspect]
     Active Substance: USTEKINUMAB
     Indication: PSORIATIC ARTHROPATHY
     Route: 058
     Dates: start: 20190124, end: 2019
  4. BETMIGA [Concomitant]
     Active Substance: MIRABEGRON
     Route: 065
  5. STELARA [Suspect]
     Active Substance: USTEKINUMAB
     Indication: PSORIATIC ARTHROPATHY
     Route: 058
     Dates: start: 20190517
  6. ZOTON [Concomitant]
     Active Substance: LANSOPRAZOLE
  7. XALATAN [Concomitant]
     Active Substance: LATANOPROST
     Route: 065

REACTIONS (1)
  - Pneumonia [Recovered/Resolved]

NARRATIVE: CASE EVENT DATE: 201903
